FAERS Safety Report 21500328 (Version 1)
Quarter: 2022Q4

REPORT INFORMATION
  Report Type: Spontaneous
  Country: US (occurrence: None)
  Receive Date: 20221024
  Receipt Date: 20221024
  Transmission Date: 20230112
  Serious: No
  Sender: FDA-Public Use
  Company Number: None

PATIENT
  Age: 43 Year
  Sex: Female

DRUGS (2)
  1. DESVENLAFAXINE [Suspect]
     Active Substance: DESVENLAFAXINE
     Indication: Major depression
     Dosage: 50MG  10AM ORAL?
     Route: 048
     Dates: start: 20180418, end: 20180425
  2. DESVENLAFAXINE [Suspect]
     Active Substance: DESVENLAFAXINE
     Dosage: 50MG 10  AM ORAL?
     Route: 048
     Dates: start: 20180531, end: 20180720

REACTIONS (7)
  - Nausea [None]
  - Depressed mood [None]
  - Frustration tolerance decreased [None]
  - Therapeutic response changed [None]
  - Product substitution issue [None]
  - Adverse drug reaction [None]
  - Adverse drug reaction [None]

NARRATIVE: CASE EVENT DATE: 20180418
